FAERS Safety Report 16477921 (Version 1)
Quarter: 2019Q2

REPORT INFORMATION
  Report Type: Report from Study
  Country: CN (occurrence: CN)
  Receive Date: 20190626
  Receipt Date: 20190626
  Transmission Date: 20190711
  Serious: Yes (Other)
  Sender: FDA-Public Use
  Company Number: CN-ROCHE-2338803

PATIENT
  Age: 55 Year
  Sex: Male
  Weight: 66 kg

DRUGS (1)
  1. BEVACIZUMAB. [Suspect]
     Active Substance: BEVACIZUMAB
     Indication: COLORECTAL CANCER
     Route: 041
     Dates: start: 20170529

REACTIONS (5)
  - Drug resistance [Unknown]
  - Pneumothorax [Unknown]
  - Metastases to lung [Unknown]
  - Intestinal stenosis [Unknown]
  - Intestinal ulcer [Unknown]
